FAERS Safety Report 7987405-7 (Version None)
Quarter: 2011Q4

REPORT INFORMATION
  Report Type: 
  Country: None (occurrence: None)
  Receive Date: 20111216
  Receipt Date: 20110406
  Transmission Date: 20120403
  Serious: No
  Sender: FDA-Public Use
  Company Number: US-BRISTOL-MYERS SQUIBB COMPANY-15656978

PATIENT
  Age: 9 Year
  Sex: Male
  Weight: 35 kg

DRUGS (3)
  1. ABILIFY [Suspect]
     Dosage: ABILIFY WAS TITRATED OVER THE COURSE OF THE 2 1/2 YEARS AS 2.5 MG THEN TO 7.5 MG AND 5 MG
  2. GUAIFENESIN [Concomitant]
  3. BENZTROPINE MESYLATE [Concomitant]

REACTIONS (1)
  - PROTRUSION TONGUE [None]
